FAERS Safety Report 9450646 (Version 1)
Quarter: 2013Q3

REPORT INFORMATION
  Report Type: Report from Study
  Country: BR (occurrence: BR)
  Receive Date: 20130809
  Receipt Date: 20130809
  Transmission Date: 20140515
  Serious: Yes (Other)
  Sender: FDA-Public Use
  Company Number: PHHY2013BR085772

PATIENT
  Age: 76 Year
  Sex: Female
  Weight: 63 kg

DRUGS (5)
  1. ACLASTA [Suspect]
     Indication: OSTEOPOROSIS
     Dosage: UNK
     Route: 042
     Dates: start: 2007
  2. ACLASTA [Suspect]
     Indication: OSTEOARTHRITIS
  3. METFORMIN [Concomitant]
     Dosage: UNK
     Dates: start: 2012
  4. VITAMIN B1 [Concomitant]
     Dosage: UNK
     Dates: start: 2013
  5. CODATEN [Concomitant]
     Dosage: UNK
     Dates: start: 2004

REACTIONS (3)
  - Liver disorder [Recovering/Resolving]
  - Anaemia [Recovering/Resolving]
  - Splenomegaly [Recovering/Resolving]
